FAERS Safety Report 25892810 (Version 1)
Quarter: 2025Q4

REPORT INFORMATION
  Report Type: Spontaneous
  Country: CN (occurrence: CN)
  Receive Date: 20251007
  Receipt Date: 20251007
  Transmission Date: 20260118
  Serious: Yes (Hospitalization)
  Sender: BEIGENE
  Company Number: CN-BEIGENE-BGN-2025-016891

PATIENT
  Age: 56 Year
  Weight: 49 kg

DRUGS (17)
  1. TISLELIZUMAB [Suspect]
     Active Substance: TISLELIZUMAB
     Indication: Ovarian cancer
     Dosage: 200 MILLIGRAM, Q2WK
  2. TISLELIZUMAB [Suspect]
     Active Substance: TISLELIZUMAB
     Dosage: 200 MILLIGRAM, Q2WK
     Route: 041
  3. TISLELIZUMAB [Suspect]
     Active Substance: TISLELIZUMAB
     Dosage: 200 MILLIGRAM, Q2WK
     Route: 041
  4. TISLELIZUMAB [Suspect]
     Active Substance: TISLELIZUMAB
     Dosage: 200 MILLIGRAM, Q2WK
  5. GEMCITABINE [Concomitant]
     Active Substance: GEMCITABINE
     Indication: Ovarian cancer
     Dosage: UNK
  6. GEMCITABINE [Concomitant]
     Active Substance: GEMCITABINE
     Dosage: UNK
  7. GEMCITABINE [Concomitant]
     Active Substance: GEMCITABINE
     Dosage: UNK
  8. GEMCITABINE [Concomitant]
     Active Substance: GEMCITABINE
     Dosage: UNK
  9. GEMCITABINE [Concomitant]
     Active Substance: GEMCITABINE
     Dosage: UNK
  10. GEMCITABINE [Concomitant]
     Active Substance: GEMCITABINE
     Dosage: UNK
  11. CATEQUENTINIB [Concomitant]
     Active Substance: CATEQUENTINIB
     Indication: Ovarian cancer
     Dosage: UNK
  12. CATEQUENTINIB [Concomitant]
     Active Substance: CATEQUENTINIB
     Dosage: UNK
  13. CATEQUENTINIB [Concomitant]
     Active Substance: CATEQUENTINIB
     Dosage: UNK
  14. CATEQUENTINIB [Concomitant]
     Active Substance: CATEQUENTINIB
     Dosage: UNK
  15. CATEQUENTINIB [Concomitant]
     Active Substance: CATEQUENTINIB
     Dosage: UNK
  16. CATEQUENTINIB [Concomitant]
     Active Substance: CATEQUENTINIB
     Dosage: 8 MILLIGRAM, QD
  17. CATEQUENTINIB [Concomitant]
     Active Substance: CATEQUENTINIB
     Dosage: 8 MILLIGRAM, QD

REACTIONS (1)
  - Immune-mediated hepatic disorder [Recovering/Resolving]
